FAERS Safety Report 9116516 (Version 1)
Quarter: 2013Q1

REPORT INFORMATION
  Report Type: Spontaneous
  Country: FR (occurrence: FR)
  Receive Date: 20130225
  Receipt Date: 20130225
  Transmission Date: 20140127
  Serious: Yes (Hospitalization)
  Sender: FDA-Public Use
  Company Number: FR-US-EMD SERONO, INC.-7194640

PATIENT
  Age: 30 Year
  Sex: Female

DRUGS (5)
  1. OVITRELLE [Suspect]
     Indication: IN VITRO FERTILISATION
     Route: 058
     Dates: start: 20080709, end: 20080709
  2. DECAPEPTYL [Suspect]
     Indication: HORMONE THERAPY
     Route: 030
     Dates: start: 20080602, end: 20080602
  3. PUREGON [Suspect]
     Indication: IN VITRO FERTILISATION
     Route: 058
     Dates: start: 20080703, end: 20080709
  4. PUREGON [Suspect]
     Route: 058
     Dates: start: 20080711, end: 20080711
  5. PUREGON [Suspect]
     Route: 058
     Dates: start: 20080713, end: 20080713

REACTIONS (1)
  - Transient ischaemic attack [Recovered/Resolved]
